FAERS Safety Report 4504631-X (Version None)
Quarter: 2004Q4

REPORT INFORMATION
  Report Type: 
  Country: None (occurrence: None)
  Receive Date: 20041118
  Receipt Date: 20041108
  Transmission Date: 20050328
  Serious: Yes (Death, Life-Threatening)
  Sender: FDA-Public Use
  Company Number: DE-JNJFOC-20041102409

PATIENT
  Age: 49 Year
  Sex: Female

DRUGS (14)
  1. HALDOL [Suspect]
     Route: 042
  2. HALDOL [Suspect]
     Route: 042
  3. GLYCYLPRESSIN [Suspect]
     Indication: DRUG USE FOR UNKNOWN INDICATION
     Route: 042
  4. FAUSTAN [Suspect]
     Route: 042
  5. FAUSTAN [Suspect]
     Route: 042
  6. FAUSTAN [Suspect]
     Indication: DRUG USE FOR UNKNOWN INDICATION
     Route: 042
  7. HAEMITON [Suspect]
     Indication: DRUG USE FOR UNKNOWN INDICATION
     Route: 042
  8. METOCLOPRAMIDE [Concomitant]
     Route: 042
  9. PANTOZOL [Concomitant]
     Route: 042
  10. VITAMIN B COMPLEX CAP [Concomitant]
  11. VITAMIN B COMPLEX CAP [Concomitant]
  12. VITAMIN B COMPLEX CAP [Concomitant]
  13. VITAMIN B COMPLEX CAP [Concomitant]
  14. VITAMIN B COMPLEX CAP [Concomitant]

REACTIONS (10)
  - ANOXIC ENCEPHALOPATHY [None]
  - CARDIAC ARREST [None]
  - DILATATION VENTRICULAR [None]
  - DRUG LEVEL INCREASED [None]
  - HEPATIC FUNCTION ABNORMAL [None]
  - HYPOVENTILATION [None]
  - MULTI-ORGAN FAILURE [None]
  - PNEUMONIA [None]
  - SEPSIS [None]
  - VENTRICULAR FIBRILLATION [None]
